FAERS Safety Report 10060294 (Version 3)
Quarter: 2014Q2

REPORT INFORMATION
  Report Type: Spontaneous
  Country: AR (occurrence: AR)
  Receive Date: 20140404
  Receipt Date: 20140425
  Transmission Date: 20141212
  Serious: Yes (Death, Hospitalization, Other)
  Sender: FDA-Public Use
  Company Number: AR-JNJFOC-20140401617

PATIENT
  Age: 83 Year
  Sex: Female

DRUGS (4)
  1. XARELTO [Suspect]
     Indication: ATRIAL FIBRILLATION
     Route: 048
     Dates: end: 20140323
  2. XARELTO [Suspect]
     Indication: CEREBROVASCULAR ACCIDENT PROPHYLAXIS
     Route: 048
     Dates: end: 20140323
  3. ASPIRINA PREVENT [Suspect]
     Indication: HYPERTENSION
     Route: 048
     Dates: end: 20140323
  4. LOSACOR [Concomitant]
     Indication: HYPERTENSION
     Route: 048
     Dates: end: 20140323

REACTIONS (3)
  - Cerebral haemorrhage [Fatal]
  - Pneumonia [Not Recovered/Not Resolved]
  - Hemiparesis [Not Recovered/Not Resolved]
